FAERS Safety Report 23828454 (Version 2)
Quarter: 2024Q2

REPORT INFORMATION
  Report Type: Spontaneous
  Country: FR (occurrence: FR)
  Receive Date: 20240508
  Receipt Date: 20240531
  Transmission Date: 20240716
  Serious: Yes (Hospitalization)
  Sender: FDA-Public Use
  Company Number: None

PATIENT
  Age: 58 Year
  Sex: Male

DRUGS (7)
  1. OLANZAPINE [Suspect]
     Active Substance: OLANZAPINE
     Indication: Schizophrenia
     Dosage: SAME DOSAGE SINCE 2019
     Route: 030
     Dates: start: 20240404, end: 20240404
  2. GLICLAZIDE [Concomitant]
     Active Substance: GLICLAZIDE
     Dosage: DAILY DOSE: 60 MILLIGRAM
  3. METFORMIN [Concomitant]
     Active Substance: METFORMIN HYDROCHLORIDE
     Dosage: DAILY DOSE: 1 GRAM
  4. XULTOPHY 100/3.6 [Concomitant]
     Active Substance: INSULIN DEGLUDEC\LIRAGLUTIDE
     Dosage: DAILY DOSE: 26 IU (INTERNATIONAL UNIT)
  5. RAMIPRIL [Concomitant]
     Active Substance: RAMIPRIL
     Dosage: DAILY DOSE: 2.5 MILLIGRAM
  6. NICOPATCH [Concomitant]
     Active Substance: NICOTINE
  7. NICOPASS [Concomitant]
     Active Substance: NICOTINE

REACTIONS (7)
  - Post-injection delirium sedation syndrome [Recovered/Resolved]
  - Tonic convulsion [Unknown]
  - Septic cardiomyopathy [Unknown]
  - Cardiac failure congestive [Unknown]
  - Tachycardia [Unknown]
  - Hypertension [Unknown]
  - Venous thrombosis limb [Unknown]

NARRATIVE: CASE EVENT DATE: 20240404
